FAERS Safety Report 5330720-6 (Version None)
Quarter: 2007Q2

REPORT INFORMATION
  Report Type: 
  Country: None (occurrence: None)
  Receive Date: 20070522
  Receipt Date: 20070515
  Transmission Date: 20071010
  Serious: Yes (Other)
  Sender: FDA-Public Use
  Company Number: PHBS2007BR08090

PATIENT
  Age: 66 Year
  Sex: Female

DRUGS (10)
  1. VOLTAREN [Suspect]
     Dosage: UNK, Q8H
  2. RENITEC [Concomitant]
     Indication: HYPERTENSION
     Dosage: 10 MG/DAY
  3. PURAN T4 [Concomitant]
     Dosage: 75 MG/DAY
  4. VALIUM [Concomitant]
     Dosage: 10 MG/DAY
  5. VALIUM [Concomitant]
     Dosage: 5 MG/DAY
  6. SIMVASTATIN [Concomitant]
     Dosage: 10 MG/DAY
  7. HYDROCHLOROTHIAZIDE [Concomitant]
  8. NOVALGINA [Concomitant]
     Dosage: 40 DRP, Q4H
  9. ORBINOL [Concomitant]
  10. TRAMADOL HCL [Concomitant]

REACTIONS (13)
  - ANORECTAL DISORDER [None]
  - BURN DEBRIDEMENT [None]
  - CHILLS [None]
  - COUGH [None]
  - DYSPNOEA [None]
  - INFLAMMATION [None]
  - OEDEMA PERIPHERAL [None]
  - PAIN [None]
  - PYREXIA [None]
  - SEPSIS [None]
  - SHOCK [None]
  - THERMAL BURN [None]
  - TREMOR [None]
